FAERS Safety Report 4925872-3 (Version None)
Quarter: 2006Q1

REPORT INFORMATION
  Report Type: 
  Country: None (occurrence: None)
  Receive Date: 20060228
  Receipt Date: 20050406
  Transmission Date: 20060701
  Serious: No
  Sender: FDA-Public Use
  Company Number: US-GLAXOSMITHKLINE-A0553028A

PATIENT
  Age: 46 Year
  Sex: Female
  Weight: 94.5 kg

DRUGS (12)
  1. LAMICTAL [Suspect]
     Dosage: 200MG PER DAY
     Route: 048
     Dates: start: 20041201
  2. ASACOL [Concomitant]
     Dosage: 800MG THREE TIMES PER DAY
     Route: 048
     Dates: start: 20040501
  3. DOXEPIN [Concomitant]
     Dosage: 50MG AT NIGHT
     Route: 048
  4. FLUOXETINE HCL [Concomitant]
     Dosage: 10MG IN THE MORNING
     Route: 048
     Dates: start: 20040801
  5. LEVOTHROID [Concomitant]
     Dosage: 125MG IN THE MORNING
     Route: 048
  6. NASACORT AQ [Concomitant]
     Dosage: 4SPR AT NIGHT
     Route: 045
  7. LORATADINE [Concomitant]
     Dosage: 10MG IN THE MORNING
     Route: 048
  8. CACO3 [Concomitant]
     Dosage: 500MG TWICE PER DAY
     Route: 048
  9. METAMUCIL [Concomitant]
  10. OMEGA 3 FISH OIL [Concomitant]
  11. FLAXSEED OIL [Concomitant]
  12. MAGNESIUM [Concomitant]

REACTIONS (1)
  - PETECHIAE [None]
